FAERS Safety Report 10191585 (Version 1)
Quarter: 2014Q2

REPORT INFORMATION
  Report Type: Spontaneous
  Country: BR (occurrence: BR)
  Receive Date: 20140523
  Receipt Date: 20140523
  Transmission Date: 20141212
  Serious: Yes (Other)
  Sender: FDA-Public Use
  Company Number: BR-PFIZER INC-2014140111

PATIENT
  Age: 83 Year
  Sex: Female
  Weight: 75 kg

DRUGS (5)
  1. GEODON [Suspect]
     Dosage: 1 CAPSULE OF STRENGTH 40 MG DAILY
     Route: 048
     Dates: start: 1994
  2. AMIODARONE HYDROCHLORIDE [Concomitant]
     Indication: MITRAL VALVE DISEASE
     Dosage: UNK
     Dates: start: 2013
  3. ENALAPRIL [Concomitant]
     Indication: BLOOD PRESSURE ABNORMAL
     Dosage: UNK
     Dates: start: 2004
  4. OLCADIL [Concomitant]
     Dosage: 1 CAPSULE AT NIGHT AND 1 IN THE MORNING
  5. OMEPRAZOLE [Concomitant]
     Indication: GASTRIC DISORDER
     Dosage: 1 CAPSULE, DAILY

REACTIONS (2)
  - Femur fracture [Unknown]
  - Upper limb fracture [Unknown]
